FAERS Safety Report 4501916-8 (Version None)
Quarter: 2004Q4

REPORT INFORMATION
  Report Type: 
  Country: None (occurrence: None)
  Receive Date: 20041116
  Receipt Date: 20041108
  Transmission Date: 20050328
  Serious: Yes (Death)
  Sender: FDA-Public Use
  Company Number: PHFR2004GB04138

PATIENT
  Age: 29 Year
  Sex: Male

DRUGS (16)
  1. VOLTAREN [Suspect]
     Indication: DRUG WITHDRAWAL SYNDROME
     Dosage: 25 MG, TID
     Route: 048
  2. HEMINEVRIN [Suspect]
     Indication: DRUG WITHDRAWAL SYNDROME
     Route: 048
     Dates: start: 20010831
  3. OMEPRAZOLE [Suspect]
     Indication: DRUG WITHDRAWAL SYNDROME
     Dosage: 20 MG/DAY
     Route: 048
  4. CLONIDINE [Suspect]
     Indication: DRUG WITHDRAWAL SYNDROME
     Dosage: .1 MG, PRN
     Route: 048
  5. DIAZEPAM [Suspect]
     Indication: DRUG WITHDRAWAL SYNDROME
     Dosage: 10 MG, PRN
     Route: 048
  6. LORAZEPAM [Suspect]
     Indication: DRUG WITHDRAWAL SYNDROME
     Dosage: 2.5 MG, PRN
     Route: 048
  7. TEMAZEPAM [Suspect]
     Indication: DRUG WITHDRAWAL SYNDROME
     Dosage: 20 MG, PRN
     Route: 048
  8. ROHYPNOL [Suspect]
     Indication: DRUG WITHDRAWAL SYNDROME
     Dosage: 1 MG, PRN
     Route: 048
  9. CHLORPROMAZINE [Suspect]
     Indication: DRUG WITHDRAWAL SYNDROME
     Dosage: 50 MG, PRN
     Route: 048
  10. OCTREOTIDE [Suspect]
     Indication: ANTIDIARRHOEAL SUPPORTIVE CARE
     Dosage: 100 UG Q12H
     Route: 058
  11. METOCLOPRAMIDE [Suspect]
     Indication: DRUG WITHDRAWAL SYNDROME
     Dosage: 10 MG Q8H
     Route: 058
  12. BUCCASTEM [Suspect]
     Indication: DRUG WITHDRAWAL SYNDROME
     Route: 048
  13. BUSCOPAN [Suspect]
     Indication: DRUG WITHDRAWAL SYNDROME
     Dosage: 10 MG, PRN
     Route: 048
  14. NALTREXONE [Suspect]
     Indication: DRUG WITHDRAWAL SYNDROME
     Route: 048
  15. ACUPAN [Suspect]
     Indication: DRUG WITHDRAWAL SYNDROME
     Route: 048
  16. ZOFRAN [Suspect]
     Indication: DRUG WITHDRAWAL SYNDROME
     Dosage: 8 MG, PRN
     Route: 048

REACTIONS (2)
  - ASPIRATION [None]
  - FOREIGN BODY ASPIRATION [None]
